FAERS Safety Report 18348686 (Version 1)
Quarter: 2020Q4

REPORT INFORMATION
  Report Type: Spontaneous
  Country: DE (occurrence: DE)
  Receive Date: 20201006
  Receipt Date: 20201006
  Transmission Date: 20210114
  Serious: Yes (Congenital Anomaly, Other)
  Sender: FDA-Public Use
  Company Number: DE-SUN PHARMACEUTICAL INDUSTRIES LTD-2020RR-263470

PATIENT
  Age: 1 Day
  Sex: Female
  Weight: 1.28 kg

DRUGS (10)
  1. ESCITALOPRAM [Concomitant]
     Active Substance: ESCITALOPRAM OXALATE
     Indication: DEPRESSION
     Dosage: 5 [MG/D ] ()
     Route: 064
  2. ACETAZOLAMIDE. [Concomitant]
     Active Substance: ACETAZOLAMIDE
     Indication: IDIOPATHIC INTRACRANIAL HYPERTENSION
     Dosage: 500 [MG/D ] ()
     Route: 064
     Dates: start: 20181219, end: 20190128
  3. QUETIAPINE. [Suspect]
     Active Substance: QUETIAPINE
     Indication: DEPRESSION
     Dosage: 125 [MG/D (BIS 62.5) ] ()
     Route: 064
     Dates: start: 20181219, end: 20190731
  4. BISOPROLOL [Suspect]
     Active Substance: BISOPROLOL
     Indication: HYPERTENSION
     Dosage: 5 [MG/D ] ()
     Route: 064
  5. HCT [Suspect]
     Active Substance: HYDROCHLOROTHIAZIDE
     Indication: HYPERTENSION
     Dosage: 25 [MG/D ] ()
     Route: 064
  6. DULOXETIN [Suspect]
     Active Substance: DULOXETINE
     Indication: DEPRESSION
     Dosage: 90 [MG/D (BIS 60) ] ()
     Route: 064
     Dates: start: 20181219, end: 20190731
  7. ARIPIPRAZOL [Concomitant]
     Active Substance: ARIPIPRAZOLE
     Indication: SCHIZOPHRENIA
     Dosage: 5 [MG/D ] ()
     Route: 064
     Dates: start: 20181219, end: 20190128
  8. VALSARTAN. [Suspect]
     Active Substance: VALSARTAN
     Indication: HYPERTENSION
     Dosage: 80 [MG/D ] ()
     Route: 064
  9. PRESINOL [Concomitant]
     Active Substance: METHYLDOPA
     Indication: HYPERTENSION
     Dosage: 500 [MG/D (2X250 MG) ] ()
     Route: 064
     Dates: start: 20190428, end: 20190731
  10. NIFEDIPIN [Concomitant]
     Active Substance: NIFEDIPINE
     Indication: HYPERTENSION
     Dosage: 15 [MG/D (3X5 MG) ] ()
     Route: 064

REACTIONS (9)
  - Single umbilical artery [Unknown]
  - Neutropenia [Unknown]
  - Congenital cerebral cyst [Unknown]
  - Foetal exposure during pregnancy [Unknown]
  - Foetal heart rate deceleration abnormality [Unknown]
  - Foetal growth restriction [Unknown]
  - Congenital hypothyroidism [Unknown]
  - Ventricular septal defect [Recovering/Resolving]
  - Atrial septal defect [Recovered/Resolved]

NARRATIVE: CASE EVENT DATE: 20190731
